FAERS Safety Report 6153749-7 (Version None)
Quarter: 2009Q2

REPORT INFORMATION
  Report Type: 
  Country: None (occurrence: None)
  Receive Date: 20090410
  Receipt Date: 20090403
  Transmission Date: 20091009
  Serious: Yes (Hospitalization, Other)
  Sender: FDA-Public Use
  Company Number: CLOF-1000458

PATIENT
  Age: 12 Year
  Sex: Female
  Weight: 69.9 kg

DRUGS (6)
  1. CLOLAR [Suspect]
     Indication: ACUTE LYMPHOCYTIC LEUKAEMIA
     Dosage: 52 MG/M2, INTRAVENOUS
     Route: 042
     Dates: start: 20090123, end: 20090127
  2. CLOLAR [Suspect]
     Indication: ACUTE LYMPHOCYTIC LEUKAEMIA
     Dosage: 52 MG/M2, INTRAVENOUS
     Route: 042
     Dates: start: 20090213, end: 20090217
  3. CLOLAR [Suspect]
  4. CYTARABINE [Suspect]
     Indication: ACUTE LYMPHOCYTIC LEUKAEMIA
     Dosage: INTRAVENOUS
     Route: 042
     Dates: start: 20090213, end: 20090217
  5. CYTARABINE [Suspect]
     Indication: ACUTE LYMPHOCYTIC LEUKAEMIA
     Dosage: INTRAVENOUS
     Route: 042
     Dates: start: 20090123
  6. METHOTREXATE [Suspect]
     Indication: ACUTE LYMPHOCYTIC LEUKAEMIA
     Dosage: 12 MG, ONCE,
     Dates: start: 20090213, end: 20090213

REACTIONS (7)
  - BLOOD CREATININE INCREASED [None]
  - BLOOD CULTURE POSITIVE [None]
  - HYPOTENSION [None]
  - KLEBSIELLA BACTERAEMIA [None]
  - PANCREATITIS [None]
  - PROTEINURIA [None]
  - STAPHYLOCOCCAL INFECTION [None]
